FAERS Safety Report 11231832 (Version 1)
Quarter: 2015Q2

REPORT INFORMATION
  Report Type: Spontaneous
  Country: US (occurrence: None)
  Receive Date: 20150630
  Receipt Date: 20150630
  Transmission Date: 20150821
  Serious: Yes (Hospitalization)
  Sender: FDA-Public Use
  Company Number: None

PATIENT
  Age: 49 Year
  Sex: Female
  Weight: 66.8 kg

DRUGS (1)
  1. FEMARA [Suspect]
     Active Substance: LETROZOLE
     Dates: end: 20150522

REACTIONS (5)
  - Vomiting [None]
  - Hypophagia [None]
  - Small intestinal obstruction [None]
  - Nausea [None]
  - Gastrointestinal disorder [None]

NARRATIVE: CASE EVENT DATE: 20150523
